FAERS Safety Report 10265459 (Version 1)
Quarter: 2014Q2

REPORT INFORMATION
  Report Type: Spontaneous
  Country: US (occurrence: None)
  Receive Date: 20140625
  Receipt Date: 20140625
  Transmission Date: 20141212
  Serious: Yes (Hospitalization)
  Sender: FDA-Public Use
  Company Number: None

PATIENT
  Age: 47 Year
  Sex: Male
  Weight: 95.7 kg

DRUGS (17)
  1. RIBAVIRIN 200MG [Suspect]
     Indication: HEPATITIS C
     Dates: start: 20140128
  2. SOFOSBUVIR 400 MG [Suspect]
     Indication: HEPATITIS C
     Route: 048
     Dates: start: 20140128
  3. AMBIEN [Concomitant]
  4. CEFTRIAXON [Concomitant]
  5. LACTULOSE [Concomitant]
  6. RIFAXIMIN [Concomitant]
  7. PROPRANOLOL [Concomitant]
  8. NEXIUM [Concomitant]
  9. SPIRONOLACTONE [Concomitant]
  10. LASIX [Concomitant]
  11. PANTROPRAZOLE [Concomitant]
  12. CALCIUM CARBONATE [Concomitant]
  13. NORFLOXACIN [Concomitant]
  14. ERYTHROPOIETIN [Concomitant]
  15. PRANDIN [Concomitant]
  16. LEVOTHYROXINE [Concomitant]
  17. JANUVIA [Concomitant]

REACTIONS (4)
  - Asterixis [None]
  - Disturbance in attention [None]
  - Dizziness [None]
  - Renal failure acute [None]
